FAERS Safety Report 5153082-6 (Version None)
Quarter: 2006Q4

REPORT INFORMATION
  Report Type: 
  Country: None (occurrence: None)
  Receive Date: 20061117
  Receipt Date: 20061108
  Transmission Date: 20070319
  Serious: Yes (Other)
  Sender: FDA-Public Use
  Company Number: PHBS2006IN17336

PATIENT
  Age: 56 Year
  Sex: Male

DRUGS (4)
  1. VOVERAN [Suspect]
     Indication: MUSCULOSKELETAL PAIN
     Dosage: 100 MG/DAY
     Route: 048
     Dates: start: 20060801
  2. LOPRIL [Concomitant]
  3. WYSOLONE [Concomitant]
     Dosage: 5 MG, UNK
  4. XANTINOL NICOTINATE [Concomitant]

REACTIONS (3)
  - HAEMOGLOBIN DECREASED [None]
  - OTORRHOEA [None]
  - TYMPANIC MEMBRANE PERFORATION [None]
